FAERS Safety Report 7658737-7 (Version None)
Quarter: 2011Q3

REPORT INFORMATION
  Report Type: 
  Country: None (occurrence: None)
  Receive Date: 20110805
  Receipt Date: 20110727
  Transmission Date: 20111222
  Serious: Yes (Other)
  Sender: FDA-Public Use
  Company Number: US-AMGEN-USASP2011038180

PATIENT
  Sex: Female

DRUGS (2)
  1. ENBREL [Suspect]
     Dates: start: 20000901
  2. ENBREL [Suspect]
     Indication: RHEUMATOID ARTHRITIS
     Dosage: UNK
     Dates: start: 20000901

REACTIONS (3)
  - KNEE ARTHROPLASTY [None]
  - STRESS [None]
  - INFECTION [None]
